FAERS Safety Report 8042786-3 (Version None)
Quarter: 2012Q1

REPORT INFORMATION
  Report Type: 
  Country: None (occurrence: None)
  Receive Date: 20120112
  Receipt Date: 20120110
  Transmission Date: 20120608
  Serious: Yes (Other)
  Sender: FDA-Public Use
  Company Number: US-ROCHE-791106

PATIENT
  Sex: Female
  Weight: 56.75 kg

DRUGS (4)
  1. CRANTEX LA [Concomitant]
  2. TRIAZ [Concomitant]
  3. ACCUTANE [Suspect]
     Indication: ACNE
     Route: 065
     Dates: start: 20030301, end: 20030901
  4. ZITHROMAX [Concomitant]

REACTIONS (3)
  - ANXIETY [None]
  - COLITIS ULCERATIVE [None]
  - INFLAMMATORY BOWEL DISEASE [None]
